FAERS Safety Report 19433516 (Version 2)
Quarter: 2021Q3

REPORT INFORMATION
  Report Type: Report from Study
  Country: None (occurrence: US)
  Receive Date: 20210618
  Receipt Date: 20210723
  Transmission Date: 20211014
  Serious: Yes (Other)
  Sender: FDA-Public Use
  Company Number: US-ABBVIE-21K-163-3951515-00

PATIENT
  Age: 41 Year
  Sex: Female
  Weight: 94.89 kg

DRUGS (4)
  1. LIPITOR [Suspect]
     Active Substance: ATORVASTATIN CALCIUM
     Indication: BLOOD CHOLESTEROL INCREASED
     Route: 030
  2. COVID?19 VACCINE [Concomitant]
     Indication: COVID-19 IMMUNISATION
     Route: 030
     Dates: start: 202104, end: 202104
  3. SKYRIZI [Suspect]
     Active Substance: RISANKIZUMAB-RZAA
     Indication: PSORIASIS
     Dosage: AT WEEK 4 AND EVERY 12 WEEKS THEREAFTER
     Route: 058
     Dates: start: 2020
  4. COVID?19 VACCINE [Concomitant]
     Route: 030
     Dates: start: 202105, end: 202105

REACTIONS (4)
  - Inappropriate schedule of product administration [Recovered/Resolved]
  - Pulmonary oedema [Unknown]
  - Psoriasis [Recovering/Resolving]
  - Cough [Not Recovered/Not Resolved]

NARRATIVE: CASE EVENT DATE: 202106
